FAERS Safety Report 25417491 (Version 2)
Quarter: 2025Q2

REPORT INFORMATION
  Report Type: Spontaneous
  Country: US (occurrence: US)
  Receive Date: 20250610
  Receipt Date: 20250626
  Transmission Date: 20250717
  Serious: Yes (Hospitalization, Other)
  Sender: TAKEDA
  Company Number: US-TAKEDA-2025TUS051808

PATIENT
  Sex: Female

DRUGS (2)
  1. VONVENDI [Suspect]
     Active Substance: VON WILLEBRAND FACTOR (RECOMBINANT)
     Indication: Immune system disorder
     Dosage: UNK UNK, Q2WEEKS
     Dates: start: 20230209
  2. VONVENDI [Suspect]
     Active Substance: VON WILLEBRAND FACTOR (RECOMBINANT)
     Indication: Von Willebrand^s disease
     Dosage: UNK UNK, Q2WEEKS

REACTIONS (3)
  - Cardiac failure congestive [Unknown]
  - Pleural effusion [Unknown]
  - Dyspnoea [Unknown]
